FAERS Safety Report 4765172-8 (Version None)
Quarter: 2005Q3

REPORT INFORMATION
  Report Type: 
  Country: None (occurrence: None)
  Receive Date: 20050909
  Receipt Date: 20050831
  Transmission Date: 20060218
  Serious: Yes (Death, Other)
  Sender: FDA-Public Use
  Company Number: US-ABBOTT-05P-163-0310045-00

PATIENT
  Age: 61 Year
  Sex: Male
  Weight: 75 kg

DRUGS (25)
  1. DILAUDID [Suspect]
     Indication: WOUND COMPLICATION
     Dates: start: 20050716
  2. POSACONAZOLE [Suspect]
     Indication: ASPERGILLOSIS
     Route: 048
     Dates: start: 20050714, end: 20050816
  3. PREDNISONE TAB [Suspect]
     Indication: HAEMOLYTIC ANAEMIA
     Route: 048
     Dates: start: 20050720, end: 20050722
  4. PREDNISONE TAB [Suspect]
     Route: 048
     Dates: start: 20050723, end: 20050726
  5. PREDNISONE TAB [Suspect]
     Route: 048
     Dates: start: 20050727, end: 20050729
  6. PREDNISONE TAB [Suspect]
     Route: 048
     Dates: start: 20050803
  7. MIDAZOLAM HYDROCHLORIDE [Suspect]
     Indication: ANAESTHESIA
     Route: 042
     Dates: start: 20050726, end: 20050726
  8. FENTANYL [Concomitant]
     Indication: ANAESTHESIA
     Route: 042
     Dates: start: 20050726, end: 20050726
  9. PROPOFOL [Concomitant]
     Indication: ANAESTHESIA
     Route: 042
     Dates: start: 20050726, end: 20050726
  10. ROCURONIUM BROMIDE [Concomitant]
     Indication: ANAESTHESIA
     Route: 042
     Dates: start: 20050726, end: 20050726
  11. LIDOCAINE [Concomitant]
     Indication: ANAESTHESIA
     Dates: start: 20050726, end: 20050726
  12. GLYCOPYRRONIUM BROMIDE [Concomitant]
     Indication: ANAESTHESIA
     Route: 042
     Dates: start: 20050726, end: 20050726
  13. NEOSTIGMINE [Concomitant]
     Indication: DRUG USE FOR UNKNOWN INDICATION
     Route: 042
     Dates: start: 20050726, end: 20050726
  14. CASPOFUNGIN ACETATE [Concomitant]
     Indication: FUNGAL INFECTION
     Dates: start: 20050727, end: 20050815
  15. CASPOFUNGIN ACETATE [Concomitant]
     Dates: start: 20050615, end: 20050708
  16. VORICONAZOLE [Concomitant]
     Indication: ANTIFUNGAL PROPHYLAXIS
     Dates: start: 20050101, end: 20050610
  17. VORICONAZOLE [Concomitant]
     Dates: start: 20050616, end: 20050714
  18. MICAFUNGIN [Concomitant]
     Indication: FUNGAL SKIN INFECTION
     Dates: start: 20050706, end: 20050717
  19. MICAFUNGIN [Concomitant]
     Dates: start: 20050718, end: 20050726
  20. SARGRAMOSTIM [Concomitant]
     Indication: FUNGAL SKIN INFECTION
     Dates: start: 20050718, end: 20050815
  21. FILGRASTIM [Concomitant]
     Indication: FUNGAL SKIN INFECTION
     Dates: start: 20050720, end: 20050815
  22. WHITE BLOOD CELLS [Concomitant]
     Indication: FUNGAL SKIN INFECTION
     Dates: start: 20050720, end: 20050816
  23. AMPHOTERICIN B [Concomitant]
     Indication: FUNGAL SKIN INFECTION
     Route: 061
     Dates: start: 20050720, end: 20050816
  24. AMPHOTERICIN B [Concomitant]
     Indication: FUNGAL INFECTION
     Dates: start: 20050610, end: 20050726
  25. INTERFERON GAMMA [Concomitant]
     Indication: FUNGAL SKIN INFECTION
     Dates: start: 20050718, end: 20050815

REACTIONS (11)
  - ASPERGILLOSIS [None]
  - DEATH [None]
  - DRUG INTERACTION [None]
  - FUNGAL INFECTION [None]
  - FUSARIUM INFECTION [None]
  - HAEMOLYTIC ANAEMIA [None]
  - HAEMORRHAGE [None]
  - HYPERBILIRUBINAEMIA [None]
  - LEUKOCYTOSIS [None]
  - PSYCHOTIC DISORDER [None]
  - RESPIRATORY DEPRESSION [None]
